FAERS Safety Report 12325484 (Version 2)
Quarter: 2016Q2

REPORT INFORMATION
  Report Type: Spontaneous
  Country: US (occurrence: US)
  Receive Date: 20160502
  Receipt Date: 20160613
  Transmission Date: 20160815
  Serious: Yes (Hospitalization, Other)
  Sender: FDA-Public Use
  Company Number: US-ELI_LILLY_AND_COMPANY-US201604008160

PATIENT
  Age: 62 Year
  Sex: Male

DRUGS (12)
  1. GLUCOPHAGE [Concomitant]
     Active Substance: METFORMIN HYDROCHLORIDE
     Indication: TYPE 2 DIABETES MELLITUS
     Dosage: 750 DF, BID
     Route: 065
     Dates: start: 20151015
  2. CRESTOR [Concomitant]
     Active Substance: ROSUVASTATIN CALCIUM
     Indication: BLOOD CHOLESTEROL
     Dosage: 20 MG, QD
     Route: 065
     Dates: start: 20090710
  3. ALTACE [Concomitant]
     Active Substance: RAMIPRIL
     Indication: BLOOD PRESSURE MEASUREMENT
     Dosage: 10 MG, QD
     Route: 065
     Dates: start: 20051004
  4. PLAVIX [Concomitant]
     Active Substance: CLOPIDOGREL BISULFATE
     Indication: PROPHYLAXIS
     Dosage: 75 MG, QD
     Route: 065
     Dates: start: 20050920
  5. GLIMEPIRIDE. [Concomitant]
     Active Substance: GLIMEPIRIDE
     Dosage: UNK, UNKNOWN
     Route: 065
  6. TRULICITY [Suspect]
     Active Substance: DULAGLUTIDE
     Indication: TYPE 2 DIABETES MELLITUS
     Dosage: 0.75 MG, WEEKLY (1/W)
     Route: 065
     Dates: start: 20151013, end: 20160402
  7. XANAX [Concomitant]
     Active Substance: ALPRAZOLAM
     Indication: ANXIETY
     Dosage: 25 DF, QD
     Route: 065
     Dates: start: 20160418
  8. DOXYCYCLINE. [Concomitant]
     Active Substance: DOXYCYCLINE
     Indication: CELLULITIS
     Dosage: 100 MG, BID
     Route: 065
     Dates: start: 20160418
  9. DIGOXIN. [Concomitant]
     Active Substance: DIGOXIN
     Dosage: 0.25 DF, QD
     Route: 065
     Dates: start: 20090710
  10. NORCO [Concomitant]
     Active Substance: ACETAMINOPHEN\HYDROCODONE BITARTRATE
     Indication: PAIN
     Dosage: 1 DF, QD
     Route: 065
     Dates: start: 20160418
  11. COREG [Concomitant]
     Active Substance: CARVEDILOL
     Indication: BLOOD PRESSURE MEASUREMENT
     Dosage: 25 MG, BID
     Route: 065
     Dates: start: 20090710
  12. ESCITALOPRAM OXALATE. [Concomitant]
     Active Substance: ESCITALOPRAM OXALATE
     Dosage: 10 MG, QD
     Route: 065
     Dates: start: 20160418

REACTIONS (3)
  - Acute kidney injury [Recovering/Resolving]
  - Hypoglycaemia [Recovered/Resolved]
  - Transaminases increased [Unknown]

NARRATIVE: CASE EVENT DATE: 20160402
